FAERS Safety Report 15766687 (Version 1)
Quarter: 2018Q4

REPORT INFORMATION
  Report Type: Spontaneous
  Country: US (occurrence: US)
  Receive Date: 20181227
  Receipt Date: 20181227
  Transmission Date: 20190205
  Serious: Yes (Hospitalization, Other)
  Sender: FDA-Public Use
  Company Number: US-BAYER-2018-242272

PATIENT
  Age: 46 Year
  Sex: Female

DRUGS (27)
  1. ADEMPAS [Suspect]
     Active Substance: RIOCIGUAT
     Indication: PULMONARY ARTERIAL HYPERTENSION
     Dosage: 2.5 MG, TID
     Route: 048
     Dates: start: 201509, end: 201511
  2. UPTRAVI [Concomitant]
     Active Substance: SELEXIPAG
  3. LASIX [Concomitant]
     Active Substance: FUROSEMIDE
     Dosage: 20 MG, BID
  4. TIZANIDINE. [Concomitant]
     Active Substance: TIZANIDINE
  5. FLUOXETINE [Concomitant]
     Active Substance: FLUOXETINE HYDROCHLORIDE
  6. ASPIRIN [ACETYLSALICYLIC ACID] [Concomitant]
     Active Substance: ASPIRIN
  7. VITAMIN D3 [Concomitant]
     Active Substance: CHOLECALCIFEROL
  8. CELLCEPT [Concomitant]
     Active Substance: MYCOPHENOLATE MOFETIL\MYCOPHENOLATE MOFETIL HYDROCHLORIDE
  9. HYDRAZINE [Concomitant]
     Active Substance: HYDRAZINE SULFATE
  10. NABUMETONE. [Concomitant]
     Active Substance: NABUMETONE
  11. OXYGEN. [Concomitant]
     Active Substance: OXYGEN
  12. VENTOLIN HFA [Concomitant]
     Active Substance: ALBUTEROL SULFATE
  13. COMBIVENT RESPIMAT [Concomitant]
     Active Substance: ALBUTEROL SULFATE\IPRATROPIUM BROMIDE
  14. ADEMPAS [Suspect]
     Active Substance: RIOCIGUAT
     Indication: PULMONARY ARTERIAL HYPERTENSION
     Dosage: UNK
     Route: 048
  15. METHYLPREDNISOLONE. [Concomitant]
     Active Substance: METHYLPREDNISOLONE
  16. HYDROXYCHLOROQUINE [Concomitant]
     Active Substance: HYDROXYCHLOROQUINE
  17. MONTELUKAST [Concomitant]
     Active Substance: MONTELUKAST SODIUM
  18. FUROSEMIDE. [Concomitant]
     Active Substance: FUROSEMIDE
  19. FOLIC ACID. [Concomitant]
     Active Substance: FOLIC ACID
  20. DIGOXIN. [Concomitant]
     Active Substance: DIGOXIN
  21. METOCLOPRAMIDE. [Concomitant]
     Active Substance: METOCLOPRAMIDE
  22. PENTOXIFYLLINE. [Concomitant]
     Active Substance: PENTOXIFYLLINE
  23. TRAMADOL. [Concomitant]
     Active Substance: TRAMADOL
  24. MIRABEGRON [Concomitant]
     Active Substance: MIRABEGRON
  25. LETAIRIS [Concomitant]
     Active Substance: AMBRISENTAN
     Dosage: 5 MG, QD
  26. LASIX [Concomitant]
     Active Substance: FUROSEMIDE
     Dosage: 40 MG, QD
  27. NEXIUM [ESOMEPRAZOLE MAGNESIUM] [Concomitant]
     Active Substance: ESOMEPRAZOLE MAGNESIUM

REACTIONS (4)
  - Dyspnoea [None]
  - Cardiac failure acute [None]
  - Oedema peripheral [None]
  - Localised oedema [None]

NARRATIVE: CASE EVENT DATE: 20181211
